FAERS Safety Report 4331623-6 (Version None)
Quarter: 2004Q2

REPORT INFORMATION
  Report Type: 
  Country: None (occurrence: None)
  Receive Date: 20040405
  Receipt Date: 20040302
  Transmission Date: 20050107
  Serious: Yes (Hospitalization)
  Sender: FDA-Public Use
  Company Number: US-MERCK-0403USA00257

PATIENT
  Age: 83 Year
  Sex: Male

DRUGS (5)
  1. REMERON [Concomitant]
     Route: 065
     Dates: start: 20040101
  2. REMERON [Concomitant]
     Route: 065
     Dates: start: 20040201, end: 20040101
  3. ZYPREXA [Concomitant]
     Route: 065
     Dates: start: 20040101, end: 20040101
  4. SEROQUEL [Concomitant]
     Route: 065
     Dates: start: 20040101, end: 20040101
  5. ZOCOR [Suspect]
     Route: 048
     Dates: start: 20020101, end: 20040228

REACTIONS (5)
  - ADVERSE EVENT [None]
  - BLOOD CREATININE INCREASED [None]
  - DEEP VEIN THROMBOSIS [None]
  - DRUG INTERACTION [None]
  - RHABDOMYOLYSIS [None]
